FAERS Safety Report 6168524-7 (Version None)
Quarter: 2009Q2

REPORT INFORMATION
  Report Type: 
  Country: None (occurrence: None)
  Receive Date: 20090427
  Receipt Date: 20090415
  Transmission Date: 20091009
  Serious: Yes (Life-Threatening, Hospitalization)
  Sender: FDA-Public Use
  Company Number: B0569978A

PATIENT
  Sex: Male

DRUGS (11)
  1. VALACYCLOVIR HCL [Suspect]
     Dosage: 500MG PER DAY
     Route: 048
     Dates: end: 20090217
  2. VELCADE [Suspect]
     Dosage: 3.5MG SEE DOSAGE TEXT
     Route: 042
     Dates: start: 20090209, end: 20090216
  3. TAZOCILLINE [Suspect]
     Dosage: 1UNIT TWICE PER DAY
     Route: 042
     Dates: start: 20090211, end: 20090223
  4. OFLOXACIN [Suspect]
     Dosage: 200MG ALTERNATE DAYS
     Route: 065
     Dates: start: 20090211, end: 20090218
  5. LYRICA [Suspect]
     Dosage: 25MG TWICE PER DAY
     Route: 048
     Dates: end: 20090218
  6. INIPOMP [Suspect]
     Route: 065
     Dates: start: 20090208, end: 20090217
  7. CALCIDOSE [Suspect]
     Route: 065
     Dates: end: 20090218
  8. FOLIC ACID [Suspect]
     Route: 065
     Dates: start: 20090209, end: 20090218
  9. CALCIPARINE [Suspect]
     Dosage: 5000IU TWICE PER DAY
     Route: 058
     Dates: start: 20090211, end: 20090217
  10. LASIX [Suspect]
     Route: 065
     Dates: start: 20090211, end: 20090218
  11. DEXAMETHASONE [Concomitant]

REACTIONS (12)
  - BLOOD LACTATE DEHYDROGENASE INCREASED [None]
  - CONFUSIONAL STATE [None]
  - ENCEPHALOPATHY [None]
  - HYPERKALAEMIA [None]
  - HYPERPHOSPHATAEMIA [None]
  - HYPERURICAEMIA [None]
  - HYPOCALCAEMIA [None]
  - MYOCLONUS [None]
  - PSYCHOMOTOR RETARDATION [None]
  - RENAL FAILURE ACUTE [None]
  - SOMNOLENCE [None]
  - TUMOUR LYSIS SYNDROME [None]
